FAERS Safety Report 4315655-X (Version None)
Quarter: 2004Q1

REPORT INFORMATION
  Report Type: 
  Country: None (occurrence: None)
  Receive Date: 20040311
  Receipt Date: 20040304
  Transmission Date: 20041129
  Serious: Yes (Hospitalization)
  Sender: FDA-Public Use
  Company Number: US-BRISTOL-MYERS SQUIBB COMPANY-12525093

PATIENT
  Age: 68 Year
  Sex: Male
  Weight: 102 kg

DRUGS (7)
  1. COUMADIN [Suspect]
     Indication: PROPHYLAXIS
     Route: 048
     Dates: start: 20031008
  2. ASPIRIN [Concomitant]
  3. IMDUR [Concomitant]
  4. LEXAPRO [Concomitant]
  5. FOSAMAX [Concomitant]
  6. LIPITOR [Concomitant]
  7. ISOSORBIDE [Concomitant]

REACTIONS (1)
  - SEROMA [None]
